FAERS Safety Report 7377419-2 (Version None)
Quarter: 2011Q1

REPORT INFORMATION
  Report Type: 
  Country: None (occurrence: None)
  Receive Date: 20110328
  Receipt Date: 20110302
  Transmission Date: 20110831
  Serious: No
  Sender: FDA-Public Use
  Company Number: US-B.I. PHARMACEUTICALS,INC./RIDGEFIELD-2011-BP-06384BP

PATIENT
  Sex: Female

DRUGS (8)
  1. PREVACID [Concomitant]
     Indication: ABDOMINAL DISCOMFORT
     Dosage: 30 MG
     Route: 048
  2. PROPRANOLOL [Concomitant]
     Indication: TREMOR
  3. SPIRIVA [Suspect]
     Indication: CHRONIC OBSTRUCTIVE PULMONARY DISEASE
     Dosage: 18 MCG
     Route: 055
     Dates: start: 20101130
  4. LASIX [Concomitant]
     Indication: FLUID RETENTION
     Dosage: 40 MG
     Route: 048
  5. SPIRONOLACTONE [Concomitant]
     Indication: FLUID RETENTION
     Dosage: 50 MG
     Route: 048
  6. PROPRANOLOL [Concomitant]
     Indication: HYPERTENSION
     Dosage: 60 MG
     Route: 048
  7. SPIRIVA [Suspect]
     Dosage: 18 MCG
     Route: 055
  8. ACTIGALL [Concomitant]
     Indication: GALLBLADDER DISORDER
     Dosage: 900 MG
     Route: 048

REACTIONS (6)
  - DYSPHONIA [None]
  - NASAL DRYNESS [None]
  - DRY MOUTH [None]
  - VAGINAL DISCHARGE [None]
  - DRY THROAT [None]
  - GLOSSODYNIA [None]
